FAERS Safety Report 12188621 (Version 1)
Quarter: 2016Q1

REPORT INFORMATION
  Report Type: Spontaneous
  Country: PT (occurrence: PT)
  Receive Date: 20160317
  Receipt Date: 20160317
  Transmission Date: 20160526
  Serious: Yes (Other)
  Sender: FDA-Public Use
  Company Number: PT-BAYER-2016-047914

PATIENT
  Age: 7 Year
  Sex: Male

DRUGS (5)
  1. ACYCLOVIR [ACICLOVIR] [Concomitant]
     Active Substance: ACYCLOVIR
     Route: 048
  2. ACETYLSALICYLIC ACID({=100 MG) [Suspect]
     Active Substance: ASPIRIN
     Indication: RETINAL ARTERY OCCLUSION
  3. ACYCLOVIR [ACICLOVIR] [Suspect]
     Active Substance: ACYCLOVIR
     Indication: NECROTISING RETINITIS
     Dosage: UNK
     Route: 042
  4. PNEUMOCOCCAL CONJUGATE VACCINE [Concomitant]
     Active Substance: PNEUMOCOCCAL VACCINE POLYVALENT
  5. ENOXAPARIN [Suspect]
     Active Substance: ENOXAPARIN
     Indication: RETINAL ARTERY OCCLUSION

REACTIONS (7)
  - Retinal haemorrhage [None]
  - Retinal fibrosis [None]
  - Visual acuity reduced [None]
  - Labelled drug-drug interaction medication error [None]
  - Retinitis [None]
  - Off label use [None]
  - Retinal vasculitis [None]
